FAERS Safety Report 11918781 (Version 1)
Quarter: 2016Q1

REPORT INFORMATION
  Report Type: Spontaneous
  Country: None (occurrence: None)
  Receive Date: 20160114
  Receipt Date: 20160114
  Transmission Date: 20160526
  Serious: Yes (Other)
  Sender: FDA-Public Use
  Company Number: None

PATIENT
  Age: 65 Year
  Sex: Female
  Weight: 90.72 kg

DRUGS (6)
  1. FOLBIC [Concomitant]
     Active Substance: CYANOCOBALAMIN\FOLIC ACID\PYRIDOXINE
  2. HUMIRA [Suspect]
     Active Substance: ADALIMUMAB
     Indication: RHEUMATOID ARTHRITIS
     Dosage: GIVEN INTO/UNDER THE SKIN, EVERY 2 WEEKS
     Dates: start: 20151028, end: 20151223
  3. METHOTREXATE [Concomitant]
     Active Substance: METHOTREXATE
  4. PREDNISONE. [Concomitant]
     Active Substance: PREDNISONE
  5. NAPROXEN. [Concomitant]
     Active Substance: NAPROXEN
  6. SODIUM [Concomitant]
     Active Substance: SODIUM

REACTIONS (7)
  - Vitreous haemorrhage [None]
  - Balance disorder [None]
  - Visual acuity reduced [None]
  - Acne [None]
  - Vitreous floaters [None]
  - Dizziness [None]
  - Vitreous detachment [None]

NARRATIVE: CASE EVENT DATE: 20151221
